FAERS Safety Report 5162374-6 (Version None)
Quarter: 2006Q4

REPORT INFORMATION
  Report Type: 
  Country: None (occurrence: None)
  Receive Date: 20061127
  Receipt Date: 20061127
  Transmission Date: 20070319
  Serious: Yes (Hospitalization)
  Sender: FDA-Public Use
  Company Number: None

PATIENT
  Sex: Female
  Weight: 68.7 kg

DRUGS (4)
  1. TEMOZOLOMIDE [Suspect]
     Dosage: 3640 MG
  2. BACTRIM [Concomitant]
  3. DEXAMETHASONE [Concomitant]
  4. KEPPRA [Concomitant]

REACTIONS (8)
  - ANORECTAL CELLULITIS [None]
  - APLASTIC ANAEMIA [None]
  - BONE MARROW FAILURE [None]
  - FEBRILE NEUTROPENIA [None]
  - GLIOBLASTOMA MULTIFORME [None]
  - HAEMORRHOIDS [None]
  - MALIGNANT NEOPLASM PROGRESSION [None]
  - THROMBOCYTOPENIA [None]
